FAERS Safety Report 15120053 (Version 3)
Quarter: 2019Q2

REPORT INFORMATION
  Report Type: Report from Study
  Country: US (occurrence: US)
  Receive Date: 20180709
  Receipt Date: 20190619
  Transmission Date: 20190711
  Serious: Yes (Other)
  Sender: FDA-Public Use
  Company Number: PHEH2018US027416

PATIENT
  Sex: Male

DRUGS (1)
  1. AFINITOR [Suspect]
     Active Substance: EVEROLIMUS
     Indication: ANGIOMYOLIPOMA
     Dosage: 10 MG, QD
     Route: 048
     Dates: start: 20150915

REACTIONS (8)
  - Recurrent cancer [Unknown]
  - Red blood cell sedimentation rate increased [Unknown]
  - Weight decreased [Unknown]
  - Decreased appetite [Unknown]
  - Gamma-glutamyltransferase increased [Unknown]
  - Metastases to spine [Unknown]
  - Blood lactate dehydrogenase increased [Unknown]
  - Pain [Unknown]
